FAERS Safety Report 8089796-8 (Version None)
Quarter: 2012Q1

REPORT INFORMATION
  Report Type: 
  Country: None (occurrence: None)
  Receive Date: 20120128
  Receipt Date: 20110616
  Transmission Date: 20120608
  Serious: No
  Sender: FDA-Public Use
  Company Number: US-ABBOTT-11P-163-0733694-00

PATIENT
  Sex: Female
  Weight: 58.112 kg

DRUGS (4)
  1. UNKNOWN ORAL CONTRACEPTIVE PILL [Concomitant]
     Indication: CONTRACEPTION
  2. HUMIRA [Suspect]
     Dates: start: 20100601
  3. AMOXICILLIN [Suspect]
     Indication: PHARYNGITIS STREPTOCOCCAL
     Dates: start: 20110501, end: 20110501
  4. HUMIRA [Suspect]
     Indication: PSORIASIS
     Dates: start: 20090101, end: 20100601

REACTIONS (3)
  - PSORIASIS [None]
  - PHARYNGITIS STREPTOCOCCAL [None]
  - DERMATITIS ALLERGIC [None]
